FAERS Safety Report 20474840 (Version 1)
Quarter: 2022Q1

REPORT INFORMATION
  Report Type: Spontaneous
  Country: US (occurrence: None)
  Receive Date: 20220214
  Receipt Date: 20220214
  Transmission Date: 20220424
  Serious: Yes (Hospitalization)
  Sender: FDA-Public Use
  Company Number: None

PATIENT
  Sex: Female

DRUGS (1)
  1. BETHKIS [Suspect]
     Active Substance: TOBRAMYCIN
     Indication: Bronchiectasis
     Dosage: OTHER FREQUENCY : 300 MG/4ML ;?FREQUENCY: 1 VIAL TWICE DAILY, EVERY OTHER MONTH
     Route: 055
     Dates: start: 20170413

REACTIONS (1)
  - COVID-19 [None]
